FAERS Safety Report 5848556-6 (Version None)
Quarter: 2008Q3

REPORT INFORMATION
  Report Type: 
  Country: None (occurrence: None)
  Receive Date: 20080818
  Receipt Date: 20080807
  Transmission Date: 20090109
  Serious: Yes (Hospitalization)
  Sender: FDA-Public Use
  Company Number: US-AMGEN-US300413

PATIENT
  Sex: Female
  Weight: 106.7 kg

DRUGS (12)
  1. ENBREL [Suspect]
     Indication: RHEUMATOID ARTHRITIS
     Dates: start: 20070920
  2. VITAMIN TAB [Concomitant]
     Route: 048
     Dates: start: 20070920, end: 20071031
  3. FOLIC ACID [Concomitant]
     Route: 048
     Dates: start: 20070920, end: 20071031
  4. CAFFEINE CITRATE [Concomitant]
     Route: 048
     Dates: start: 20070920, end: 20080404
  5. VICODIN [Concomitant]
     Route: 048
     Dates: start: 20070920, end: 20080602
  6. IMURAN [Concomitant]
     Route: 048
     Dates: start: 20070920, end: 20080201
  7. PREDNISONE [Concomitant]
     Route: 048
     Dates: start: 20080101, end: 20080401
  8. PLAQUENIL [Concomitant]
     Dates: start: 20070920, end: 20080602
  9. ZANTAC [Concomitant]
     Route: 048
     Dates: start: 20070920, end: 20080602
  10. AMBIEN [Concomitant]
     Route: 048
     Dates: start: 20070920
  11. TYLENOL [Concomitant]
     Route: 048
     Dates: start: 20070920, end: 20080602
  12. BENADRYL [Concomitant]
     Route: 048
     Dates: start: 20070920, end: 20080602

REACTIONS (3)
  - LABOUR INDUCTION [None]
  - OLIGOHYDRAMNIOS [None]
  - PREGNANCY INDUCED HYPERTENSION [None]
